FAERS Safety Report 19013132 (Version 5)
Quarter: 2022Q1

REPORT INFORMATION
  Report Type: Report from Study
  Country: IT (occurrence: IT)
  Receive Date: 20210315
  Receipt Date: 20220111
  Transmission Date: 20220423
  Serious: Yes (Hospitalization)
  Sender: FDA-Public Use
  Company Number: IT-ROCHE-2485057

PATIENT
  Age: 82 Year
  Sex: Female
  Weight: 95 kg

DRUGS (68)
  1. EPIRUBICIN HYDROCHLORIDE [Suspect]
     Active Substance: EPIRUBICIN HYDROCHLORIDE
     Indication: Breast cancer
     Dosage: 48 MG, WEEKLY
     Route: 042
     Dates: start: 20190622, end: 20190808
  2. EXEMESTANE [Suspect]
     Active Substance: EXEMESTANE
     Indication: Breast cancer
     Dosage: O.D. - ONCE DAILY
     Route: 048
     Dates: start: 20171207, end: 20180604
  3. EXEMESTANE [Suspect]
     Active Substance: EXEMESTANE
     Indication: HER2 positive breast cancer
  4. PACLITAXEL [Suspect]
     Active Substance: PACLITAXEL
     Indication: Breast cancer
     Dosage: LAST DOSE 02/JUN/2017
     Route: 042
     Dates: start: 20170407, end: 20170602
  5. PACLITAXEL [Suspect]
     Active Substance: PACLITAXEL
     Indication: HER2 positive breast cancer
  6. TRASTUZUMAB [Suspect]
     Active Substance: TRASTUZUMAB
     Indication: Breast cancer
     Dosage: 760 MG, EVERY 3 WEEKS
     Route: 041
     Dates: start: 20170407, end: 20170407
  7. TRASTUZUMAB [Suspect]
     Active Substance: TRASTUZUMAB
     Indication: HER2 positive breast cancer
     Dosage: 564 MG, EVERY 3 WEEKS
     Route: 041
     Dates: start: 20170428, end: 20170519
  8. TRASTUZUMAB [Suspect]
     Active Substance: TRASTUZUMAB
     Dosage: 564 MG, EVERY 3 WEEKS
     Route: 041
     Dates: start: 20170519, end: 20180510
  9. TRASTUZUMAB [Suspect]
     Active Substance: TRASTUZUMAB
     Dosage: MOST RECENT DOSE PRIOR TO THE EVENT: 14/FEB/2019
     Route: 041
     Dates: start: 20181120, end: 20190214
  10. TRASTUZUMAB [Suspect]
     Active Substance: TRASTUZUMAB
     Dosage: 528 MG, EVERY 3 WEEKS
     Route: 041
     Dates: start: 20190307, end: 20190509
  11. TRASTUZUMAB [Suspect]
     Active Substance: TRASTUZUMAB
     Dosage: 540 MG, EVERY 3 WEEKS
     Route: 041
     Dates: start: 20170519, end: 20180510
  12. ADO-TRASTUZUMAB EMTANSINE [Suspect]
     Active Substance: ADO-TRASTUZUMAB EMTANSINE
     Indication: Breast cancer
     Dosage: LAST DOSE 29/AUG/2018
     Route: 042
     Dates: start: 20180606, end: 20180829
  13. ADO-TRASTUZUMAB EMTANSINE [Suspect]
     Active Substance: ADO-TRASTUZUMAB EMTANSINE
     Indication: HER2 positive breast cancer
  14. PERTUZUMAB [Suspect]
     Active Substance: PERTUZUMAB
     Indication: Breast cancer
     Dosage: 840 MG, EVERY 3 WEEKS
     Route: 042
     Dates: start: 20170407, end: 20170407
  15. PERTUZUMAB [Suspect]
     Active Substance: PERTUZUMAB
     Indication: HER2 positive breast cancer
     Dosage: MOST RECENT DOSE PRIOR TO THE EVENT: 10/MAY/2018
     Route: 042
     Dates: start: 20170428, end: 20180510
  16. LETROZOLE [Suspect]
     Active Substance: LETROZOLE
     Indication: Breast cancer
     Dosage: 2.5 MG, 1X/DAY
     Route: 048
     Dates: start: 20170616, end: 20171207
  17. LETROZOLE [Suspect]
     Active Substance: LETROZOLE
     Indication: HER2 positive breast cancer
     Dosage: MOST RECENT DOSE PRIOR TO THE EVENT:  24/MAY/2019
     Route: 048
     Dates: start: 20181109, end: 20190524
  18. DEXAMETHASONE [Concomitant]
     Active Substance: DEXAMETHASONE
     Dosage: UNK
     Route: 042
     Dates: start: 20170407, end: 20190808
  19. DEXAMETHASONE [Concomitant]
     Active Substance: DEXAMETHASONE
     Route: 042
     Dates: start: 20171116, end: 20171116
  20. TELMISARTAN [Concomitant]
     Active Substance: TELMISARTAN
     Dates: end: 20190913
  21. TELMISARTAN [Concomitant]
     Active Substance: TELMISARTAN
     Dosage: ONGOING = NOT CHECKED
     Route: 048
     Dates: end: 20190913
  22. OXYCODONE [Concomitant]
     Active Substance: OXYCODONE
     Indication: Pain
     Dates: start: 20190608, end: 20190913
  23. OXYCODONE [Concomitant]
     Active Substance: OXYCODONE
     Dosage: FREQ:.5 D;ONGOING = NOT CHECKED
     Route: 048
     Dates: start: 20190608, end: 20190913
  24. FLUCONAZOLE [Concomitant]
     Active Substance: FLUCONAZOLE
     Indication: Pain
     Dates: start: 20190902, end: 20190910
  25. HYDROCHLOROTHIAZIDE [Concomitant]
     Active Substance: HYDROCHLOROTHIAZIDE
     Dates: end: 20190913
  26. DULOXETINE [Concomitant]
     Active Substance: DULOXETINE
     Dates: end: 20190913
  27. DULOXETINE [Concomitant]
     Active Substance: DULOXETINE
     Dosage: ONGOING = NOT CHECKED
     Route: 048
     Dates: end: 20190913
  28. BISOPROLOL FUMARATE [Concomitant]
     Active Substance: BISOPROLOL FUMARATE
     Indication: Pain
     Dates: start: 20190902, end: 20190910
  29. NORVASC [Concomitant]
     Active Substance: AMLODIPINE BESYLATE
     Dates: end: 20190913
  30. NORVASC [Concomitant]
     Active Substance: AMLODIPINE BESYLATE
     Dosage: ONGOING = NOT CHECKED
     Route: 048
     Dates: end: 20190913
  31. MORPHINE SULFATE [Concomitant]
     Active Substance: MORPHINE SULFATE
     Indication: Pain
     Dosage: UNK
     Dates: start: 20190608, end: 20190913
  32. MORPHINE SULFATE [Concomitant]
     Active Substance: MORPHINE SULFATE
     Dosage: ONGOING = NOT CHECKED
     Route: 048
     Dates: start: 20190608, end: 20190913
  33. ALLOPURINOL [Concomitant]
     Active Substance: ALLOPURINOL
     Dosage: UNK
     Dates: end: 20190913
  34. ALLOPURINOL [Concomitant]
     Active Substance: ALLOPURINOL
     Dosage: ONGOING = NOT CHECKED
     Route: 048
     Dates: end: 20190913
  35. ENOXAPARIN [Concomitant]
     Active Substance: ENOXAPARIN
     Dates: start: 20190613, end: 20190913
  36. ENOXAPARIN [Concomitant]
     Active Substance: ENOXAPARIN
     Dosage: ONGOING = NOT CHECKED
     Route: 058
     Dates: start: 20190613, end: 20190913
  37. RANITIDINE [Concomitant]
     Active Substance: RANITIDINE
     Dates: start: 20190530, end: 20190913
  38. PREDNISONE [Concomitant]
     Active Substance: PREDNISONE
     Indication: Asthenia
     Dates: start: 20190530, end: 20190913
  39. PREDNISONE [Concomitant]
     Active Substance: PREDNISONE
     Dosage: ONGOING = NOT CHECKED
     Route: 048
     Dates: start: 20190530, end: 20190913
  40. PREDNISONE [Concomitant]
     Active Substance: PREDNISONE
     Dosage: 100 MG
     Route: 048
     Dates: start: 20170406, end: 20170519
  41. ALPRAZOLAM [Concomitant]
     Active Substance: ALPRAZOLAM
     Indication: Anxiety
     Dates: start: 20190530, end: 20190913
  42. ALPRAZOLAM [Concomitant]
     Active Substance: ALPRAZOLAM
     Dosage: FREQ:.33 D;ONGOING = NOT CHECKED
     Route: 048
     Dates: start: 20190530, end: 20190913
  43. ACETAMINOPHEN [Concomitant]
     Active Substance: ACETAMINOPHEN
     Indication: Back pain
     Route: 048
     Dates: start: 20170825, end: 20190913
  44. ACETAMINOPHEN [Concomitant]
     Active Substance: ACETAMINOPHEN
     Dosage: 500 MG
     Route: 048
     Dates: start: 20170407, end: 20180829
  45. PANTOPRAZOLE [Concomitant]
     Active Substance: PANTOPRAZOLE
     Indication: Gastritis
     Route: 048
     Dates: start: 20170606, end: 20190530
  46. TRANEXAMIC ACID [Concomitant]
     Active Substance: TRANEXAMIC ACID
     Indication: Upper gastrointestinal haemorrhage
     Dosage: FREQ:.33 D;
     Route: 048
     Dates: start: 20170508, end: 20170515
  47. DIAZEPAM [Concomitant]
     Active Substance: DIAZEPAM
     Indication: Anxiety
     Route: 048
     Dates: start: 20170513, end: 20170515
  48. DEXAMETHASONE\TOBRAMYCIN [Concomitant]
     Active Substance: DEXAMETHASONE\TOBRAMYCIN
     Indication: Conjunctivitis
     Route: 061
     Dates: start: 20170914, end: 20170919
  49. SUCRALFATE [Concomitant]
     Active Substance: SUCRALFATE
     Indication: Upper gastrointestinal haemorrhage
     Dosage: FREQ:.33 D;
     Route: 048
     Dates: start: 20170508, end: 20170529
  50. METHYLPREDNISOLONE [Concomitant]
     Active Substance: METHYLPREDNISOLONE
     Indication: Arthralgia
     Route: 048
     Dates: start: 20171116, end: 20171207
  51. PANTOPRAZOLE SODIUM [Concomitant]
     Active Substance: PANTOPRAZOLE SODIUM
     Dosage: UNK
     Route: 042
     Dates: start: 20170530, end: 20170601
  52. PANTOPRAZOLE SODIUM [Concomitant]
     Active Substance: PANTOPRAZOLE SODIUM
     Dosage: UNK
  53. LANSOPRAZOLE [Concomitant]
     Active Substance: LANSOPRAZOLE
     Indication: Upper gastrointestinal haemorrhage
     Route: 048
     Dates: start: 20170513, end: 20170529
  54. OMEPRAZOLE [Concomitant]
     Active Substance: OMEPRAZOLE
     Indication: Upper gastrointestinal haemorrhage
     Dosage: FREQ:.5 D;
     Route: 042
     Dates: start: 20170508, end: 20170513
  55. LOPERAMIDE [Concomitant]
     Active Substance: LOPERAMIDE
     Indication: Diarrhoea
     Route: 048
     Dates: start: 20170513, end: 20170526
  56. LOPERAMIDE [Concomitant]
     Active Substance: LOPERAMIDE
     Route: 048
     Dates: start: 20170504, end: 20170504
  57. PLAVIX [Concomitant]
     Active Substance: CLOPIDOGREL BISULFATE
     Dosage: 75 MG
     Route: 048
     Dates: end: 20170508
  58. ONDANSETRON [Concomitant]
     Active Substance: ONDANSETRON
     Indication: Nausea
     Route: 042
     Dates: start: 20190622, end: 20190704
  59. CERNEVIT [Concomitant]
     Active Substance: VITAMINS
     Route: 042
     Dates: start: 20170821, end: 20170821
  60. ACETAMINOPHEN\CODEINE PHOSPHATE [Concomitant]
     Active Substance: ACETAMINOPHEN\CODEINE PHOSPHATE
     Indication: Arthralgia
     Dosage: 80 MG
     Route: 048
     Dates: start: 20171116, end: 20171206
  61. SODIUM ALGINATE\SODIUM BICARBONATE [Concomitant]
     Active Substance: SODIUM ALGINATE\SODIUM BICARBONATE
     Indication: Gastritis
     Dosage: 767 MG
     Route: 048
     Dates: start: 20170606, end: 20170616
  62. RANITIDINE [Concomitant]
     Active Substance: RANITIDINE
     Indication: Gastritis
     Dosage: FREQ:.5 D;ONGOING = NOT CHECKED
     Route: 048
     Dates: start: 20190530, end: 20190913
  63. HYDROCHLOROTHIAZIDE [Concomitant]
     Active Substance: HYDROCHLOROTHIAZIDE
     Dosage: ONGOING = NOT CHECKED
     Route: 048
     Dates: end: 20190913
  64. POTASSIUM [Concomitant]
     Active Substance: POTASSIUM
     Indication: Diarrhoea
     Dosage: FREQ:.5 D;
     Route: 048
     Dates: start: 20190709, end: 20190712
  65. AMOXICILLIN [Concomitant]
     Active Substance: AMOXICILLIN
     Dosage: FREQ:.33 D;
     Route: 048
     Dates: start: 20190725, end: 20190801
  66. KCL [Concomitant]
     Active Substance: POTASSIUM CHLORIDE
     Route: 048
     Dates: start: 20170515, end: 20170526
  67. HYALURONIC ACID [Concomitant]
     Active Substance: HYALURONIC ACID
     Route: 061
     Dates: start: 20171005, end: 20171207
  68. CLORFENAMINA MALEATO [Concomitant]
     Route: 030
     Dates: start: 20170407, end: 20190509

REACTIONS (1)
  - Pain [Recovered/Resolved]

NARRATIVE: CASE EVENT DATE: 20190902
